FAERS Safety Report 17106616 (Version 1)
Quarter: 2019Q4

REPORT INFORMATION
  Report Type: Spontaneous
  Country: FR (occurrence: FR)
  Receive Date: 20191203
  Receipt Date: 20191203
  Transmission Date: 20200122
  Serious: Yes (Other)
  Sender: FDA-Public Use
  Company Number: FR-MYLANLABS-2019M1116380

PATIENT
  Age: 63 Year
  Sex: Female

DRUGS (2)
  1. ZOPICLONE MYLAN [Suspect]
     Active Substance: ZOPICLONE
     Indication: AFFECTIVE DISORDER
     Dosage: UNK
     Route: 048
     Dates: start: 2019
  2. LAMOTRIGINE MYLAN [Suspect]
     Active Substance: LAMOTRIGINE
     Indication: AFFECTIVE DISORDER
     Dosage: UNK
     Route: 048
     Dates: start: 2019

REACTIONS (5)
  - Respiratory disorder [Not Recovered/Not Resolved]
  - Pruritus [Not Recovered/Not Resolved]
  - Weight decreased [Not Recovered/Not Resolved]
  - Dry skin [Not Recovered/Not Resolved]
  - Diarrhoea [Not Recovered/Not Resolved]

NARRATIVE: CASE EVENT DATE: 2019
